FAERS Safety Report 7674785-5 (Version None)
Quarter: 2011Q3

REPORT INFORMATION
  Report Type: 
  Country: None (occurrence: None)
  Receive Date: 20110810
  Receipt Date: 20110803
  Transmission Date: 20111222
  Serious: Yes (Death)
  Sender: FDA-Public Use
  Company Number: FR-GLAXOSMITHKLINE-B0736796A

PATIENT
  Sex: Male

DRUGS (6)
  1. ARIXTRA [Suspect]
     Indication: PRODUCT USED FOR UNKNOWN INDICATION
     Dosage: 7.5MG PER DAY
     Route: 058
     Dates: end: 20110614
  2. LEVOTHYROXINE SODIUM [Suspect]
     Indication: HYPOTHYROIDISM
     Dosage: 100MCG PER DAY
     Route: 048
  3. ASPIRIN [Suspect]
     Dosage: 75MG PER DAY
     Route: 048
  4. ALLOPURINOL [Suspect]
     Indication: HYPERURICAEMIA
     Dosage: 300MG PER DAY
     Route: 048
  5. FERROUS SULFATE TAB [Suspect]
     Dosage: 80MG PER DAY
     Route: 048
  6. SPIRIVA [Suspect]
     Dosage: 1PUFF PER DAY
     Route: 055

REACTIONS (7)
  - HAEMARTHROSIS [None]
  - INTESTINAL OBSTRUCTION [None]
  - MUSCLE HAEMORRHAGE [None]
  - SEPTIC SHOCK [None]
  - ANAEMIA [None]
  - RENAL FAILURE ACUTE [None]
  - FAECAL VOMITING [None]
